FAERS Safety Report 5888366-7 (Version None)
Quarter: 2008Q3

REPORT INFORMATION
  Report Type: 
  Country: None (occurrence: None)
  Receive Date: 20080918
  Receipt Date: 20080912
  Transmission Date: 20090109
  Serious: Yes (Congenital Anomaly)
  Sender: FDA-Public Use
  Company Number: GB-TEVA-177340ISR

PATIENT
  Sex: Male
  Weight: 3.56 kg

DRUGS (3)
  1. LAMOTRIGINE [Suspect]
     Indication: MYOCLONIC EPILEPSY
     Route: 064
  2. PHENOBARBITAL TAB [Suspect]
     Route: 064
  3. TOPIRAMATE [Suspect]
     Indication: GRAND MAL CONVULSION
     Route: 064

REACTIONS (1)
  - CLEFT LIP AND PALATE [None]
